FAERS Safety Report 5261770-6 (Version None)
Quarter: 2007Q1

REPORT INFORMATION
  Report Type: 
  Country: None (occurrence: None)
  Receive Date: 20070307
  Receipt Date: 20070226
  Transmission Date: 20070707
  Serious: Yes (Hospitalization)
  Sender: FDA-Public Use
  Company Number: 009-C5013-07011535

PATIENT
  Age: 67 Year
  Sex: Male

DRUGS (2)
  1. CC-5013 ( LENALIDOMIDE) CAPSULES) [Suspect]
     Indication: MULTIPLE MYELOMA
     Dosage: 10 MG, ORAL
     Route: 048
     Dates: start: 20061206, end: 20070207
  2. CC-5013 ( LENALIDOMIDE) CAPSULES) [Suspect]
     Indication: MULTIPLE MYELOMA
     Dosage: 10 MG, ORAL
     Route: 048
     Dates: start: 20070220

REACTIONS (5)
  - ACUTE RESPIRATORY DISTRESS SYNDROME [None]
  - AORTIC ARTERIOSCLEROSIS [None]
  - ATRIAL FIBRILLATION [None]
  - BLOOD PRESSURE DECREASED [None]
  - BRONCHITIS [None]
